FAERS Safety Report 9322518 (Version 2)
Quarter: 2013Q3

REPORT INFORMATION
  Report Type: Spontaneous
  Country: SE (occurrence: SE)
  Receive Date: 20130531
  Receipt Date: 20130715
  Transmission Date: 20140515
  Serious: Yes (Other)
  Sender: FDA-Public Use
  Company Number: SE-PFIZER INC-2013163550

PATIENT
  Age: 47 Year
  Sex: Male

DRUGS (6)
  1. SOLU-MEDROL [Suspect]
     Indication: PROPHYLAXIS AGAINST TRANSPLANT REJECTION
     Dosage: 500 MG, DAILY FOR THREE DAYS
     Dates: start: 20121121, end: 20121124
  2. SOLIRIS [Suspect]
     Indication: HAEMOLYTIC URAEMIC SYNDROME
     Dosage: 1200 MG, EVERY TWO WEEKS
     Route: 042
     Dates: start: 201208
  3. SOLIRIS [Suspect]
     Indication: PROPHYLAXIS
  4. TACROLIMUS [Suspect]
     Indication: IMMUNOSUPPRESSION
     Dosage: 2.5 MG, 2X/DAY
     Dates: start: 20120822
  5. CELLCEPT [Suspect]
     Indication: IMMUNOSUPPRESSION
     Dosage: 1 G, 2X/DAY
     Dates: start: 20120822
  6. PREDNISONE [Suspect]
     Indication: IMMUNOSUPPRESSION
     Dosage: 15 MG, QD
     Dates: start: 20120822

REACTIONS (2)
  - Kidney transplant rejection [Unknown]
  - BK virus infection [Not Recovered/Not Resolved]
